FAERS Safety Report 16384808 (Version 2)
Quarter: 2019Q2

REPORT INFORMATION
  Report Type: Report from Study
  Country: US (occurrence: US)
  Receive Date: 20190603
  Receipt Date: 20190613
  Transmission Date: 20190711
  Serious: No
  Sender: FDA-Public Use
  Company Number: US-EXELIXIS-CABO-19021482

PATIENT
  Sex: Male

DRUGS (12)
  1. AMOXICILLIN AND CLAVULANATE POTASSIUM [Concomitant]
     Active Substance: AMOXICILLIN\CLAVULANATE POTASSIUM
  2. OXYCODONE [Concomitant]
     Active Substance: OXYCODONE
  3. PHENAZOPYRIDINE. [Concomitant]
     Active Substance: PHENAZOPYRIDINE
  4. TOBRAMYCIN AND DEXAMETHASONE [Concomitant]
     Active Substance: DEXAMETHASONE\TOBRAMYCIN
  5. GABAPENTIN. [Concomitant]
     Active Substance: GABAPENTIN
  6. DEXAMETHASONE. [Concomitant]
     Active Substance: DEXAMETHASONE
  7. AZITHROMYCIN ANHYDROUS. [Concomitant]
     Active Substance: AZITHROMYCIN ANHYDROUS
  8. FEROSUL [Concomitant]
  9. VITAMIN C [Concomitant]
     Active Substance: ASCORBIC ACID
  10. CABOMETYX [Suspect]
     Active Substance: CABOZANTINIB S-MALATE
     Indication: RENAL CANCER
     Dosage: UNK
  11. APAP/CODEINE [Concomitant]
     Active Substance: ACETAMINOPHEN\CODEINE PHOSPHATE
  12. CEPHALEXIN. [Concomitant]
     Active Substance: CEPHALEXIN

REACTIONS (1)
  - No adverse event [Unknown]
